FAERS Safety Report 16700954 (Version 1)
Quarter: 2019Q3

REPORT INFORMATION
  Report Type: Other
  Country: IT (occurrence: IT)
  Receive Date: 20190814
  Receipt Date: 20190814
  Transmission Date: 20191004
  Serious: Yes (Other)
  Sender: FDA-Public Use
  Company Number: IT-LUPIN PHARMACEUTICALS INC.-2019-03758

PATIENT
  Age: 35 Year
  Sex: Female

DRUGS (2)
  1. PAROXETINE. [Suspect]
     Active Substance: PAROXETINE
     Indication: DEPRESSION
     Dosage: 20 MILLIGRAM, QD
     Route: 048
     Dates: start: 20190503, end: 20190513
  2. DEPAKIN CHRONO [VALPROATE SODIUM;VALPROIC ACID] [Concomitant]
     Active Substance: VALPROIC ACID
     Indication: PRODUCT USED FOR UNKNOWN INDICATION
     Dosage: UNK
     Route: 065

REACTIONS (4)
  - Arthralgia [Recovering/Resolving]
  - Headache [Recovering/Resolving]
  - Dysentery [Recovering/Resolving]
  - Vomiting [Recovering/Resolving]

NARRATIVE: CASE EVENT DATE: 20190513
